FAERS Safety Report 10197559 (Version 1)
Quarter: 2014Q2

REPORT INFORMATION
  Report Type: Spontaneous
  Country: US (occurrence: US)
  Receive Date: 20140527
  Receipt Date: 20140527
  Transmission Date: 20141212
  Serious: No
  Sender: FDA-Public Use
  Company Number: US-NOVEN-14US009429

PATIENT
  Age: 44 Year
  Sex: Female

DRUGS (3)
  1. MINIVELLE [Suspect]
     Indication: NIGHT SWEATS
     Dosage: .075 MG, UNK
     Dates: start: 201404
  2. MINIVELLE [Suspect]
     Indication: HOT FLUSH
     Dosage: 0.1 MG, UNK
     Route: 062
     Dates: start: 201403, end: 201404
  3. MINIVELLE [Suspect]
     Dosage: 0.075 MG, UNK
     Route: 062
     Dates: start: 20140228, end: 201403

REACTIONS (3)
  - Paraesthesia [Not Recovered/Not Resolved]
  - Sensory disturbance [Not Recovered/Not Resolved]
  - Blood oestrogen increased [Not Recovered/Not Resolved]
